FAERS Safety Report 8842132 (Version 1)
Quarter: 2012Q4

REPORT INFORMATION
  Report Type: 
  Country: MX (occurrence: MX)
  Receive Date: 20121016
  Receipt Date: 20121016
  Transmission Date: 20130627
  Serious: Yes (Hospitalization)
  Sender: FDA-Public Use
  Company Number: PHHY2012MX091152

PATIENT
  Sex: Male

DRUGS (4)
  1. CO-DIOVAN [Suspect]
     Indication: HYPERTENSION
     Dosage: 1 DF (160/12.5mg) daily
     Dates: start: 201202
  2. CO-DIOVAN [Suspect]
     Dosage: 0.5 DF (160/12.5mg) daily
     Dates: start: 201209
  3. CORDARONE [Concomitant]
     Indication: ARRHYTHMIA
     Dosage: 0.5 DF, daily
     Dates: start: 201203
  4. VYTORIN [Concomitant]
     Indication: BLOOD CHOLESTEROL
     Dosage: 0.5 DF, daily
     Dates: start: 201207

REACTIONS (2)
  - Hypoxia [Recovered/Resolved]
  - Wrong technique in drug usage process [Unknown]
